FAERS Safety Report 20584804 (Version 1)
Quarter: 2022Q1

REPORT INFORMATION
  Report Type: Spontaneous
  Country: US (occurrence: US)
  Receive Date: 20220311
  Receipt Date: 20220311
  Transmission Date: 20220423
  Serious: Yes (Death, Hospitalization, Other)
  Sender: FDA-Public Use
  Company Number: US-NOVARTISPH-NVSC2022US057481

PATIENT
  Age: 70 Year
  Sex: Male

DRUGS (6)
  1. METHYLPREDNISOLONE [Suspect]
     Active Substance: METHYLPREDNISOLONE
     Indication: Product used for unknown indication
     Dosage: 60 MG, QD
     Route: 042
  2. PREDNISONE [Suspect]
     Active Substance: PREDNISONE
     Indication: Product used for unknown indication
     Dosage: 40 MG, QD
     Route: 048
  3. HYDROCORTISONE [Concomitant]
     Active Substance: HYDROCORTISONE
     Indication: Adrenal insufficiency
     Dosage: UNK
     Route: 042
  4. HYDROCORTISONE [Concomitant]
     Active Substance: HYDROCORTISONE
     Indication: Shock
  5. MEROPENEM [Concomitant]
     Active Substance: MEROPENEM
     Indication: Escherichia sepsis
     Dosage: UNK
     Route: 065
  6. IVERMECTIN [Concomitant]
     Active Substance: IVERMECTIN
     Indication: Escherichia sepsis
     Dosage: UNK
     Route: 048

REACTIONS (2)
  - Strongyloidiasis [Fatal]
  - Clostridium difficile colitis [Unknown]
